FAERS Safety Report 5167642-X (Version None)
Quarter: 2006Q4

REPORT INFORMATION
  Report Type: 
  Country: None (occurrence: None)
  Receive Date: 20061204
  Receipt Date: 20061204
  Transmission Date: 20070319
  Serious: Yes (Other)
  Sender: FDA-Public Use
  Company Number: None

PATIENT
  Sex: Male
  Weight: 74.3 kg

DRUGS (6)
  1. LEXIVA [Suspect]
     Indication: HIV INFECTION
     Dosage: 1400 MG  DAILY  PO
     Route: 048
     Dates: start: 20050916, end: 20061130
  2. NORVIR [Suspect]
     Indication: HIV INFECTION
     Dosage: 200 MG DAILY PO
     Route: 048
     Dates: start: 20050916, end: 20061130
  3. EPZICOM [Concomitant]
  4. ALBUTEROL [Concomitant]
  5. MEGACE [Concomitant]
  6. ANDRODERM [Concomitant]

REACTIONS (2)
  - BLOOD INSULIN INCREASED [None]
  - DIABETES MELLITUS NON-INSULIN-DEPENDENT [None]
